FAERS Safety Report 11090456 (Version 1)
Quarter: 2015Q2

REPORT INFORMATION
  Report Type: Spontaneous
  Country: TR (occurrence: None)
  Receive Date: 20150501
  Receipt Date: 20150501
  Transmission Date: 20150821
  Serious: Yes (Life-Threatening, Hospitalization)
  Sender: FDA-Public Use
  Company Number: 2015COR00081

PATIENT
  Age: 12 Year
  Sex: Male

DRUGS (1)
  1. METHYLPHENIDATE [Suspect]
     Active Substance: METHYLPHENIDATE
     Indication: ATTENTION DEFICIT/HYPERACTIVITY DISORDER
     Dosage: 1X/DAY
     Route: 048

REACTIONS (10)
  - Intentional overdose [None]
  - Blood pressure increased [None]
  - Agitation [None]
  - Depressed mood [None]
  - Somnolence [None]
  - Respiratory rate increased [None]
  - Heart rate increased [None]
  - Suicide attempt [None]
  - Irritability [None]
  - Tachycardia [None]
